FAERS Safety Report 12544093 (Version 1)
Quarter: 2016Q3

REPORT INFORMATION
  Report Type: Spontaneous
  Country: TR (occurrence: TR)
  Receive Date: 20160711
  Receipt Date: 20160711
  Transmission Date: 20161109
  Serious: Yes (Hospitalization, Other)
  Sender: FDA-Public Use
  Company Number: TR-ACCORD-042222

PATIENT
  Age: 44 Year
  Sex: Male

DRUGS (1)
  1. AMITRIPTYLINE [Suspect]
     Active Substance: AMITRIPTYLINE
     Dosage: 80 TABLETS (2,000 MG)

REACTIONS (8)
  - Hypotension [Recovered/Resolved]
  - Electrocardiogram QRS complex prolonged [Recovered/Resolved]
  - Overdose [Unknown]
  - Respiratory disorder [Recovered/Resolved]
  - Prescription drug used without a prescription [Unknown]
  - Coma [Recovered/Resolved]
  - Heart rate increased [Recovered/Resolved]
  - Suicidal ideation [Unknown]
